FAERS Safety Report 8604839 (Version 2)
Quarter: 2012Q4

REPORT INFORMATION
  Report Type: 
  Country: DE (occurrence: DE)
  Receive Date: 20120608
  Receipt Date: 20120921
  Transmission Date: 20130627
  Serious: Yes (Hospitalization, Other)
  Sender: FDA-Public Use
  Company Number: DE-ELI_LILLY_AND_COMPANY-DE201205010473

PATIENT
  Age: 83 Year
  Sex: Female

DRUGS (1)
  1. FORSTEO [Suspect]
     Indication: OSTEOPOROSIS
     Dosage: UNK, qd
     Dates: start: 20101130

REACTIONS (3)
  - Raynaud^s phenomenon [Unknown]
  - Thermal burn [Unknown]
  - Skin discolouration [Unknown]
